FAERS Safety Report 20136520 (Version 2)
Quarter: 2022Q1

REPORT INFORMATION
  Report Type: Spontaneous
  Country: US (occurrence: US)
  Receive Date: 20211201
  Receipt Date: 20220302
  Transmission Date: 20220423
  Serious: Yes (Hospitalization)
  Sender: FDA-Public Use
  Company Number: US-JNJFOC-20211146130

PATIENT
  Age: 21 Year
  Sex: Male
  Weight: 73 kg

DRUGS (5)
  1. ACETAMINOPHEN [Suspect]
     Active Substance: ACETAMINOPHEN
     Indication: Suicide attempt
     Dosage: TOTAL DOSE OF 21000 MG ACETAMINOPHEN ONCE ON 05-JAN-2002 AT 13:00
     Route: 048
     Dates: start: 20020105, end: 20020105
  2. MOTRIN [Suspect]
     Active Substance: IBUPROFEN
     Indication: Suicide attempt
     Dosage: TOTAL DOSE OF 4800 MG OF IBUPROFEN FOR 1 DAY
     Route: 048
     Dates: start: 20020105, end: 20020105
  3. SUDAFED [Suspect]
     Active Substance: PSEUDOEPHEDRINE HYDROCHLORIDE
     Indication: Suicide attempt
     Dosage: TOTAL DOSE OF 720 MG OF PSEUDOEPHEDRINE HYDROCHLORIDE ONCE ON 05/JAN/2002
     Route: 048
     Dates: start: 20020105, end: 20020105
  4. SEREVENT DISKUS [Concomitant]
     Active Substance: SALMETEROL XINAFOATE
     Route: 065
  5. ALBUTEROL [Concomitant]
     Active Substance: ALBUTEROL
     Indication: Product used for unknown indication
     Route: 065

REACTIONS (4)
  - Suicide attempt [Recovered/Resolved]
  - Chest X-ray abnormal [Recovered/Resolved]
  - Acute hepatic failure [Recovered/Resolved]
  - Intentional overdose [Recovered/Resolved]

NARRATIVE: CASE EVENT DATE: 20020105
